FAERS Safety Report 15130443 (Version 2)
Quarter: 2021Q2

REPORT INFORMATION
  Report Type: Report from Study
  Country: US (occurrence: US)
  Receive Date: 20180711
  Receipt Date: 20210412
  Transmission Date: 20210716
  Serious: No
  Sender: FDA-Public Use
  Company Number: PHHY2018US035044

PATIENT
  Age: 27 Year
  Sex: Female
  Weight: 62 kg

DRUGS (5)
  1. NECON [Concomitant]
     Active Substance: ETHINYL ESTRADIOL\NORETHINDRONE
     Indication: CONTRACEPTION
     Route: 065
  2. AZITHROMYCIN ANHYDROUS. [Concomitant]
     Active Substance: AZITHROMYCIN ANHYDROUS
     Indication: PNEUMONITIS
     Dosage: 500 MG, STOPPED ON 3RD WEEK OF PREGNANCY
     Route: 048
     Dates: start: 2015, end: 20171204
  3. KALYDECO [Concomitant]
     Active Substance: IVACAFTOR
     Indication: CYSTIC FIBROSIS
     Dosage: 150 MG, UNK
     Route: 048
     Dates: start: 201709
  4. TOBRAMYCIN. [Suspect]
     Active Substance: TOBRAMYCIN
     Indication: PSEUDOMONAS INFECTION
     Dosage: 300 MG, STOPPED ON 3RD WEEK OF PREGNANCY
     Route: 055
     Dates: start: 2015, end: 20171204
  5. DELTASONE [Concomitant]
     Active Substance: PREDNISONE
     Indication: BRONCHOPULMONARY ASPERGILLOSIS ALLERGIC
     Dosage: 10 MG, UNK
     Route: 048
     Dates: start: 2016, end: 20180413

REACTIONS (1)
  - Maternal exposure during pregnancy [Unknown]
